FAERS Safety Report 14538640 (Version 2)
Quarter: 2018Q1

REPORT INFORMATION
  Report Type: Spontaneous
  Country: US (occurrence: US)
  Receive Date: 20180216
  Receipt Date: 20180220
  Transmission Date: 20180509
  Serious: Yes (Hospitalization, Other)
  Sender: FDA-Public Use
  Company Number: US-ABBVIE-18P-163-2257627-00

PATIENT
  Age: 62 Year
  Sex: Female
  Weight: 73.55 kg

DRUGS (18)
  1. METOPROLOL SUCCINATE. [Concomitant]
     Active Substance: METOPROLOL SUCCINATE
     Indication: MITRAL VALVE PROLAPSE
  2. ESTRADIOL. [Concomitant]
     Active Substance: ESTRADIOL
     Indication: HORMONE REPLACEMENT THERAPY
  3. RED RICE YEAST [Concomitant]
     Active Substance: DIETARY SUPPLEMENT
     Indication: SUPPLEMENTATION THERAPY
  4. MINOCYCLINE ACETNIDE CREAM WITH UREA [Concomitant]
     Indication: DERMATITIS
  5. TRAMADOL. [Concomitant]
     Active Substance: TRAMADOL
     Indication: PRODUCT USED FOR UNKNOWN INDICATION
  6. CALCIUM CITRATE W VIT D [Concomitant]
     Indication: VITAMIN SUPPLEMENTATION
  7. SYNTHROID [Suspect]
     Active Substance: LEVOTHYROXINE SODIUM
     Route: 048
  8. SYNTHROID [Suspect]
     Active Substance: LEVOTHYROXINE SODIUM
     Route: 048
     Dates: end: 2009
  9. MVI [Concomitant]
     Active Substance: VITAMINS
     Indication: VITAMIN SUPPLEMENTATION
  10. PROBIOTIC [Concomitant]
     Active Substance: PROBIOTICS NOS
     Indication: PROBIOTIC THERAPY
  11. DIGITALIS [Concomitant]
     Active Substance: DIGITALIS
     Indication: PRODUCT USED FOR UNKNOWN INDICATION
  12. SYNTHROID [Suspect]
     Active Substance: LEVOTHYROXINE SODIUM
     Indication: HYPOTHYROIDISM
     Dosage: FOR A FEW MONTHS
     Route: 048
     Dates: start: 2004, end: 2004
  13. MAGNESIUM [Concomitant]
     Active Substance: MAGNESIUM
     Indication: MINERAL SUPPLEMENTATION
  14. SYNTHROID [Suspect]
     Active Substance: LEVOTHYROXINE SODIUM
     Dosage: FOR A FEW MONTHS
     Route: 048
     Dates: start: 2004
  15. METOPROLOL SUCCINATE. [Concomitant]
     Active Substance: METOPROLOL SUCCINATE
     Indication: CARDIAC MURMUR
  16. CALCIUM CITRATE W VIT D [Concomitant]
     Indication: MINERAL SUPPLEMENTATION
  17. ZYRTEC [Concomitant]
     Active Substance: CETIRIZINE HYDROCHLORIDE
     Indication: PRODUCT USED FOR UNKNOWN INDICATION
  18. ACETAMINOPHEN. [Concomitant]
     Active Substance: ACETAMINOPHEN
     Indication: PRODUCT USED FOR UNKNOWN INDICATION

REACTIONS (16)
  - Pain in extremity [Not Recovered/Not Resolved]
  - Wound drainage [Unknown]
  - Wound [Recovered/Resolved]
  - Vasodilatation [Unknown]
  - Vomiting [Recovered/Resolved]
  - Loss of consciousness [Unknown]
  - Blister [Recovering/Resolving]
  - Pruritus [Recovered/Resolved]
  - Hypothyroidism [Unknown]
  - Skull fracture [Recovered/Resolved]
  - Fall [Not Recovered/Not Resolved]
  - Loss of consciousness [Recovered/Resolved]
  - Skin swelling [Unknown]
  - Bacterial sepsis [Recovered/Resolved]
  - Oedema peripheral [Not Recovered/Not Resolved]
  - Seborrhoeic dermatitis [Unknown]

NARRATIVE: CASE EVENT DATE: 2008
